FAERS Safety Report 18498815 (Version 2)
Quarter: 2020Q4

REPORT INFORMATION
  Report Type: Spontaneous
  Country: BR (occurrence: BR)
  Receive Date: 20201113
  Receipt Date: 20201227
  Transmission Date: 20210114
  Serious: Yes (Disabling)
  Sender: FDA-Public Use
  Company Number: BR-CELLTRION INC.-2018BR024190

PATIENT

DRUGS (14)
  1. REMSIMA [Suspect]
     Active Substance: INFLIXIMAB
     Dosage: 4 AMPOULES, EVERY 8 WEEKS
     Route: 042
     Dates: start: 20190109, end: 20190109
  2. BUPROPION. [Concomitant]
     Active Substance: BUPROPION
     Indication: DEPRESSION
     Dosage: UNK
  3. SERTRALINE HYDROCHLORIDE. [Concomitant]
     Active Substance: SERTRALINE HYDROCHLORIDE
     Dosage: UNK
  4. REMSIMA [Suspect]
     Active Substance: INFLIXIMAB
     Dosage: 4 AMPOULES, EVERY 8 WEEKS
     Route: 042
     Dates: start: 20180725, end: 20180725
  5. REMSIMA [Suspect]
     Active Substance: INFLIXIMAB
     Dosage: 4 AMPOULES, EVERY 8 WEEKS
     Route: 042
     Dates: start: 20180919, end: 20180919
  6. REMSIMA [Suspect]
     Active Substance: INFLIXIMAB
     Dosage: 4 AMPOULES, EVERY 8 WEEKS
     Route: 042
     Dates: start: 20190502, end: 20190502
  7. REMSIMA [Suspect]
     Active Substance: INFLIXIMAB
     Indication: PSORIASIS
     Dosage: FLASK AMPOULE 100MG
     Dates: start: 201712
  8. VALPROIC ACID. [Concomitant]
     Active Substance: VALPROIC ACID
     Dosage: UNK
     Dates: start: 1988, end: 20190110
  9. ARISTAB [Concomitant]
     Active Substance: ARIPIPRAZOLE
     Indication: DEPRESSION
     Dosage: UNK
  10. LITHIUM CARBONATE. [Concomitant]
     Active Substance: LITHIUM CARBONATE
     Dosage: UNK
  11. METHOTREXATE. [Concomitant]
     Active Substance: METHOTREXATE
     Dosage: UNK
  12. REMSIMA [Suspect]
     Active Substance: INFLIXIMAB
     Dosage: 4 AMPOULES, EVERY 8 WEEKS
     Route: 042
     Dates: start: 20181114, end: 20181114
  13. CLONAZEPAM. [Concomitant]
     Active Substance: CLONAZEPAM
     Dosage: UNK
  14. PRIMIDONE. [Concomitant]
     Active Substance: PRIMIDONE
     Dosage: UNK
     Dates: start: 20190110

REACTIONS (5)
  - Drug dependence [Unknown]
  - Drug ineffective [Unknown]
  - Headache [Recovered/Resolved]
  - Pruritus [Recovered/Resolved]
  - Parkinsonism [Unknown]

NARRATIVE: CASE EVENT DATE: 2018
